FAERS Safety Report 14150547 (Version 1)
Quarter: 2017Q4

REPORT INFORMATION
  Report Type: Spontaneous
  Country: PH (occurrence: PH)
  Receive Date: 20171101
  Receipt Date: 20171101
  Transmission Date: 20180321
  Serious: Yes (Other)
  Sender: FDA-Public Use
  Company Number: PH-009507513-1710PHL014629

PATIENT
  Age: 40 Year
  Sex: Female

DRUGS (3)
  1. SIMVASTATIN. [Suspect]
     Active Substance: SIMVASTATIN
     Indication: BLOOD CHOLESTEROL INCREASED
     Dosage: AS NEEDED
     Route: 048
     Dates: end: 201602
  2. OKRA. [Concomitant]
     Active Substance: OKRA
  3. COZAAR [Suspect]
     Active Substance: LOSARTAN POTASSIUM
     Indication: HYPERTENSION
     Dosage: 50 MG, OD
     Route: 048
     Dates: end: 201608

REACTIONS (4)
  - Hemiplegia [Not Recovered/Not Resolved]
  - Cerebrovascular accident [Unknown]
  - Inappropriate schedule of drug administration [Unknown]
  - Diabetes mellitus [Not Recovered/Not Resolved]

NARRATIVE: CASE EVENT DATE: 2005
